FAERS Safety Report 13939851 (Version 1)
Quarter: 2017Q3

REPORT INFORMATION
  Report Type: Spontaneous
  Country: US (occurrence: US)
  Receive Date: 20170906
  Receipt Date: 20170906
  Transmission Date: 20171127
  Serious: No
  Sender: FDA-Public Use
  Company Number: US-ASTRAZENECA-2017SE90557

PATIENT
  Sex: Female
  Weight: 65.8 kg

DRUGS (2)
  1. FULVESTRANT. [Suspect]
     Active Substance: FULVESTRANT
     Indication: BREAST CANCER METASTATIC
     Route: 030
     Dates: start: 201708
  2. IBRANCE [Suspect]
     Active Substance: PALBOCICLIB
     Route: 048

REACTIONS (4)
  - Hyperkalaemia [Unknown]
  - Rash erythematous [Unknown]
  - Blood calcium increased [Recovered/Resolved]
  - Rash pruritic [Not Recovered/Not Resolved]
